FAERS Safety Report 22177349 (Version 1)
Quarter: 2023Q2

REPORT INFORMATION
  Report Type: Spontaneous
  Country: CH (occurrence: CH)
  Receive Date: 20230405
  Receipt Date: 20230405
  Transmission Date: 20230722
  Serious: No
  Sender: FDA-Public Use
  Company Number: CH-CHEMOCENTRYX, INC.-2023CHCCXI0812

PATIENT

DRUGS (2)
  1. TAVNEOS [Suspect]
     Active Substance: AVACOPAN
     Indication: Product used for unknown indication
     Dosage: SCHEDULED (PLANNED) THERAPY 180 CAPSULES (30 MG, 2 IN 1 D)
     Route: 065
     Dates: start: 20221025
  2. RITUXIMAB [Concomitant]
     Active Substance: RITUXIMAB
     Indication: Product used for unknown indication
     Dosage: DOSAGE OF RITUXIMAB WAS NOT PROVIDED
     Route: 065
     Dates: start: 20221025

REACTIONS (1)
  - Oral herpes [Not Recovered/Not Resolved]

NARRATIVE: CASE EVENT DATE: 20230209
